FAERS Safety Report 6506168-5 (Version None)
Quarter: 2009Q4

REPORT INFORMATION
  Report Type: 
  Country: None (occurrence: None)
  Receive Date: 20091218
  Receipt Date: 20091207
  Transmission Date: 20100525
  Serious: Yes (Hospitalization)
  Sender: FDA-Public Use
  Company Number: US-ELI_LILLY_AND_COMPANY-US200912001579

PATIENT
  Age: 34 Year
  Sex: Female
  Weight: 84 kg

DRUGS (3)
  1. GEMCITABINE HCL [Suspect]
     Indication: BREAST CANCER
     Dosage: 1000 MG/M2, OTHER
     Route: 042
     Dates: start: 20090707
  2. PACLITAXEL, ALBUMIN-BOUND [Suspect]
     Indication: BREAST CANCER
     Dosage: 125 MG/M2, OTHER
     Route: 042
     Dates: start: 20090707
  3. BEVACIZUMAB [Suspect]
     Indication: BREAST CANCER
     Dosage: 15 MG/KG, OTHER
     Route: 042
     Dates: start: 20090707

REACTIONS (5)
  - BLOOD AMYLASE INCREASED [None]
  - BONE PAIN [None]
  - DIARRHOEA [None]
  - LIPASE INCREASED [None]
  - NAUSEA [None]
